FAERS Safety Report 8530088-8 (Version None)
Quarter: 2012Q3

REPORT INFORMATION
  Report Type: 
  Country: None (occurrence: None)
  Receive Date: 20120723
  Receipt Date: 20120718
  Transmission Date: 20120928
  Serious: Yes (Other)
  Sender: FDA-Public Use
  Company Number: PHEH2007US06794

PATIENT
  Sex: Female
  Weight: 92.971 kg

DRUGS (50)
  1. PACLITAXEL [Suspect]
  2. LIPITOR [Concomitant]
  3. CEFUROXIME AXETIL [Concomitant]
  4. VITAMIN D [Concomitant]
  5. HYDROCODONE BITARTRATE AND ACETAMINOPHEN [Concomitant]
  6. MOTRIN [Concomitant]
  7. CYTOXAN [Concomitant]
  8. FOLATE SODIUM [Concomitant]
  9. OXYCODONE HCL [Concomitant]
  10. AMOXICILLIN [Concomitant]
  11. TRAZODONE HYDROCHLORIDE [Concomitant]
  12. DEPO-MEDROL [Concomitant]
     Dosage: 120 MG, UNK
  13. ARIMIDEX [Concomitant]
  14. ZOMETA [Suspect]
     Indication: METASTASES TO BONE
     Dosage: 4 MG, UNK
     Dates: start: 20020304, end: 20040901
  15. AREDIA [Suspect]
     Dosage: 90 MG, UNK
     Dates: end: 20010221
  16. RADIATION THERAPY [Concomitant]
  17. LUPRON [Concomitant]
     Dates: start: 20050101
  18. PAXIL [Concomitant]
  19. SERTRALINE HYDROCHLORIDE [Concomitant]
     Dosage: 100 MG, 1 TABLET DAILY
  20. ZOLOFT [Concomitant]
     Route: 048
  21. ROBAXIN [Concomitant]
     Route: 048
  22. MAGNESIUM SULFATE [Concomitant]
  23. ALPHA LIPOIC ACID [Concomitant]
  24. AROMASIN [Concomitant]
  25. AVASTIN [Concomitant]
  26. FEMARA [Concomitant]
  27. PROCHLORPERAZINE [Concomitant]
     Dosage: 10 MG, UNK
  28. ASPIRIN [Concomitant]
  29. MULTIVITAMIN ^LAPPE^ [Concomitant]
  30. ADRIAMYCIN PFS [Concomitant]
  31. ANZEMET [Concomitant]
  32. FISH OIL [Concomitant]
  33. TURMERIC [Concomitant]
  34. SIMVASTATIN [Concomitant]
  35. CALCIUM [Concomitant]
  36. ZOLADEX [Concomitant]
  37. TAXOTERE [Concomitant]
  38. HYDROGEN PEROXIDE MOUTH RINSE [Concomitant]
  39. METHOCARBAMOL [Concomitant]
     Dosage: 750 MG, UNK
  40. PRILOSEC [Concomitant]
  41. PENICILLIN VK [Concomitant]
     Dosage: 500 MG, UNK
  42. DEXAMETHASONE [Concomitant]
  43. CLINDAMYCIN [Concomitant]
     Route: 048
  44. FEXOFENADINE [Concomitant]
     Dosage: 180 MG, UNK
  45. TAXOL [Concomitant]
  46. ETHYOL [Concomitant]
  47. MAGACE [Concomitant]
  48. PEPCID [Concomitant]
  49. LORTAB [Concomitant]
     Route: 048
  50. OOPHORECTOMY [Concomitant]

REACTIONS (81)
  - OSTEONECROSIS OF JAW [None]
  - TOOTH LOSS [None]
  - IRON DEFICIENCY ANAEMIA [None]
  - CERVICAL DYSPLASIA [None]
  - METASTASES TO SPINE [None]
  - NOCTURIA [None]
  - HIATUS HERNIA [None]
  - DEEP VEIN THROMBOSIS [None]
  - CATARACT [None]
  - CONJUNCTIVITIS [None]
  - BILIARY DYSKINESIA [None]
  - HYPOAESTHESIA [None]
  - NEOPLASM SKIN [None]
  - DECREASED APPETITE [None]
  - TRICUSPID VALVE INCOMPETENCE [None]
  - PANCREATITIS [None]
  - OSTEOSARCOMA METASTATIC [None]
  - INTERVERTEBRAL DISC DEGENERATION [None]
  - LUNG NEOPLASM [None]
  - ATELECTASIS [None]
  - FATIGUE [None]
  - SINUS CONGESTION [None]
  - FEMUR FRACTURE [None]
  - GENERAL PHYSICAL HEALTH DETERIORATION [None]
  - ANXIETY [None]
  - RIB FRACTURE [None]
  - DIVERTICULUM [None]
  - RETINAL MELANOMA [None]
  - BACK PAIN [None]
  - ANAEMIA [None]
  - CARDIAC MURMUR [None]
  - DIARRHOEA [None]
  - OSTEOPENIA [None]
  - WEIGHT DECREASED [None]
  - MITRAL VALVE INCOMPETENCE [None]
  - COMPRESSION FRACTURE [None]
  - PLEURAL EFFUSION [None]
  - PERICARDIAL EFFUSION [None]
  - HEADACHE [None]
  - NIGHT SWEATS [None]
  - TENDON INJURY [None]
  - ABDOMINAL HERNIA [None]
  - CALCULUS URETERIC [None]
  - METASTASES TO LIVER [None]
  - THYROID CYST [None]
  - DRY EYE [None]
  - UPPER-AIRWAY COUGH SYNDROME [None]
  - VITREOUS FLOATERS [None]
  - DYSPEPSIA [None]
  - ADNEXA UTERI CYST [None]
  - JOINT INJURY [None]
  - HYDRONEPHROSIS [None]
  - HYDROURETER [None]
  - RETINAL PIGMENT EPITHELIOPATHY [None]
  - NEUROPATHY PERIPHERAL [None]
  - BONE PAIN [None]
  - ORAL PAIN [None]
  - MUSCULOSKELETAL PAIN [None]
  - HYPERTENSION [None]
  - PAIN [None]
  - INJURY [None]
  - NEPHROLITHIASIS [None]
  - INTERVERTEBRAL DISC PROTRUSION [None]
  - BRONCHITIS [None]
  - SEXUALLY TRANSMITTED DISEASE [None]
  - PEPTIC ULCER [None]
  - MYOPIA [None]
  - VOMITING [None]
  - RENAL CYST [None]
  - ASTHENIA [None]
  - HOT FLUSH [None]
  - MASTOID DISORDER [None]
  - PULMONARY VALVE INCOMPETENCE [None]
  - SPONDYLOLISTHESIS [None]
  - ORAL DISORDER [None]
  - DEPRESSION [None]
  - SINUSITIS [None]
  - NAUSEA [None]
  - ARTHRALGIA [None]
  - PHOTOPHOBIA [None]
  - MOOD ALTERED [None]
